FAERS Safety Report 8875452 (Version 2)
Quarter: 2012Q4

REPORT INFORMATION
  Report Type: 
  Country: TR (occurrence: TR)
  Receive Date: 20121030
  Receipt Date: 20121121
  Transmission Date: 20130627
  Serious: Yes (Other)
  Sender: FDA-Public Use
  Company Number: TR-WATSON-2012-18480

PATIENT
  Sex: Female

DRUGS (2)
  1. PREDNISOLONE (UNKNOWN) [Suspect]
     Indication: FOETAL EXPOSURE DURING PREGNANCY
     Dosage: UNK
     Route: 064
  2. CYCLOSPORINE (WATSON LABORATORIES) [Suspect]
     Indication: FOETAL EXPOSURE DURING PREGNANCY
     Dosage: UNK
     Route: 064

REACTIONS (5)
  - Low birth weight baby [Recovered/Resolved]
  - Premature baby [Recovered/Resolved]
  - Sepsis neonatal [Recovered/Resolved]
  - Intraventricular haemorrhage neonatal [Recovered/Resolved]
  - Foetal exposure during pregnancy [Recovered/Resolved]
